FAERS Safety Report 14302816 (Version 2)
Quarter: 2017Q4

REPORT INFORMATION
  Report Type: Spontaneous
  Country: JP (occurrence: JP)
  Receive Date: 20171219
  Receipt Date: 20171231
  Transmission Date: 20180321
  Serious: Yes (Other)
  Sender: FDA-Public Use
  Company Number: JP-TEVA-2017-JP-833258

PATIENT
  Age: 68 Year
  Sex: Female

DRUGS (1)
  1. SULFASALAZINE. [Suspect]
     Active Substance: SULFASALAZINE
     Route: 065

REACTIONS (1)
  - Glomerulonephritis rapidly progressive [Unknown]
